FAERS Safety Report 6856053-4 (Version None)
Quarter: 2010Q3

REPORT INFORMATION
  Report Type: 
  Country: None (occurrence: None)
  Receive Date: 20100715
  Receipt Date: 20100715
  Transmission Date: 20110219
  Serious: Yes (Life-Threatening, Hospitalization, Other)
  Sender: FDA-Public Use
  Company Number: None

PATIENT
  Age: 37 Year
  Sex: Female
  Weight: 58.9676 kg

DRUGS (2)
  1. INVEGA SUSTENNA [Suspect]
     Indication: MANIA
     Dosage: 117 Q 28 DAYS IM
     Route: 030
     Dates: start: 20100214, end: 20100413
  2. INVEGA SUSTENNA [Suspect]
     Indication: PSYCHOTIC DISORDER
     Dosage: 117 Q 28 DAYS IM
     Route: 030
     Dates: start: 20100214, end: 20100413

REACTIONS (13)
  - ANXIETY [None]
  - APHASIA [None]
  - COMMUNICATION DISORDER [None]
  - CRYING [None]
  - FEAR [None]
  - HAEMORRHAGE [None]
  - MENTAL DISORDER [None]
  - MULTIPLE DRUG OVERDOSE [None]
  - PSYCHIATRIC SYMPTOM [None]
  - SELF INJURIOUS BEHAVIOUR [None]
  - SUICIDAL IDEATION [None]
  - SUICIDE ATTEMPT [None]
  - VOMITING [None]
